FAERS Safety Report 8601871-5 (Version None)
Quarter: 2012Q3

REPORT INFORMATION
  Report Type: 
  Country: None (occurrence: None)
  Receive Date: 20120817
  Receipt Date: 20120511
  Transmission Date: 20120928
  Serious: No
  Sender: FDA-Public Use
  Company Number: US-BRISTOL-MYERS SQUIBB COMPANY-16587891

PATIENT
  Age: 63 Year
  Sex: Female

DRUGS (4)
  1. SPRYCEL [Suspect]
     Indication: CHRONIC MYELOID LEUKAEMIA
     Dosage: SPRYCEL WAS REDUCED TO 80 MG ON 13MAR2012   DOSAGE OF SPRYCEL TO 70 MG DAILY
     Dates: start: 20120113
  2. TRIAMTERENE AND HYDROCHLOROTHIAZIDE [Concomitant]
  3. TRAZODONE HCL [Concomitant]
  4. OMEPRAZOLE [Concomitant]

REACTIONS (1)
  - STOMATITIS [None]
